FAERS Safety Report 16033229 (Version 1)
Quarter: 2019Q1

REPORT INFORMATION
  Report Type: Spontaneous
  Country: CA (occurrence: CA)
  Receive Date: 20190305
  Receipt Date: 20190305
  Transmission Date: 20190418
  Serious: Yes (Hospitalization, Other)
  Sender: FDA-Public Use
  Company Number: CA-CELLTRION INC.-2019CA019066

PATIENT

DRUGS (6)
  1. PERCOCET [Suspect]
     Active Substance: ACETAMINOPHEN\OXYCODONE HYDROCHLORIDE
     Dosage: UNK
     Route: 065
  2. FLUOXETINE [Concomitant]
     Active Substance: FLUOXETINE HYDROCHLORIDE
     Dosage: 20 MG, 1X/DAY
     Route: 048
  3. INFLIXIMAB PFIZER (UNKNOWN) [Suspect]
     Active Substance: INFLIXIMAB
     Indication: COLITIS ULCERATIVE
     Dosage: 900 MG, UNK
     Route: 042
  4. PANTOLOC [PANTOPRAZOLE] [Concomitant]
     Active Substance: PANTOPRAZOLE SODIUM
     Dosage: 40 MG, 1X/DAY
     Route: 048
  5. PENTASA [Concomitant]
     Active Substance: MESALAMINE
     Dosage: 1.0 GRAM, 1X/DAY
     Route: 048
  6. PREDNISONE. [Concomitant]
     Active Substance: PREDNISONE
     Dosage: 50 MG, ONCE EVERY 2 WEEKS
     Route: 048

REACTIONS (8)
  - Abdominal pain upper [Unknown]
  - Haemoglobin decreased [Unknown]
  - Pericarditis [Unknown]
  - Infection [Unknown]
  - Pyrexia [Unknown]
  - Musculoskeletal pain [Unknown]
  - Headache [Unknown]
  - Dyspnoea [Unknown]
